FAERS Safety Report 13922661 (Version 1)
Quarter: 2017Q3

REPORT INFORMATION
  Report Type: Spontaneous
  Country: CA (occurrence: CA)
  Receive Date: 20170830
  Receipt Date: 20170830
  Transmission Date: 20171127
  Serious: Yes (Life-Threatening, Hospitalization, Other)
  Sender: FDA-Public Use
  Company Number: CA-MYLANLABS-2017M1053479

PATIENT
  Age: 49 Year
  Sex: Female

DRUGS (3)
  1. ESCITALOPRAM [Suspect]
     Active Substance: ESCITALOPRAM OXALATE
     Indication: INTENTIONAL OVERDOSE
     Dosage: 60 MG
     Route: 048
  2. RISPERIDONE. [Concomitant]
     Active Substance: RISPERIDONE
     Indication: INTENTIONAL OVERDOSE
     Dosage: 6 MG
     Route: 048
  3. AMLODIPINE [Suspect]
     Active Substance: AMLODIPINE BESYLATE
     Indication: INTENTIONAL OVERDOSE
     Dosage: 150 MG
     Route: 048

REACTIONS (17)
  - Cardiogenic shock [Recovered/Resolved]
  - Blindness [Not Recovered/Not Resolved]
  - Cytotoxic oedema [Recovering/Resolving]
  - Tachycardia [Recovering/Resolving]
  - Ischaemia [Not Recovered/Not Resolved]
  - Toxicity to various agents [Recovering/Resolving]
  - Pulmonary oedema [Recovering/Resolving]
  - Hypokalaemia [Recovering/Resolving]
  - Hypoglycaemia [Recovering/Resolving]
  - Cerebral infarction [Recovering/Resolving]
  - Hypotension [Recovering/Resolving]
  - Hypothermia [Recovering/Resolving]
  - Embolism [Recovering/Resolving]
  - Altered state of consciousness [Recovering/Resolving]
  - Optic nerve injury [Not Recovered/Not Resolved]
  - Intentional overdose [Recovering/Resolving]
  - Anuria [Recovered/Resolved]
